FAERS Safety Report 8600677-0 (Version None)
Quarter: 2012Q3

REPORT INFORMATION
  Report Type: 
  Country: None (occurrence: None)
  Receive Date: 20120817
  Receipt Date: 20120806
  Transmission Date: 20120928
  Serious: Yes (Death, Hospitalization, Other)
  Sender: FDA-Public Use
  Company Number: ES-MPIJNJ-2012-05548

PATIENT

DRUGS (11)
  1. CARVEDILOL [Concomitant]
     Dosage: UNK
     Dates: start: 20080508
  2. OMEPRAZOLE [Concomitant]
     Dosage: UNK
     Dates: start: 20120508
  3. CALCIUM [Concomitant]
     Dosage: UNK
     Dates: start: 20090429
  4. ACENOCOUMAROL [Concomitant]
     Dosage: UNK
     Dates: start: 20080305
  5. CANDESARTAN CILEXETIL [Concomitant]
     Dosage: UNK
     Dates: start: 20080508
  6. VELCADE [Suspect]
     Indication: MULTIPLE MYELOMA
     Dosage: 1.3 MG, UNK
     Route: 042
     Dates: start: 20120703, end: 20120713
  7. PREDNISONE TAB [Concomitant]
     Dosage: UNK
     Dates: start: 20090625
  8. FUROSEMIDE [Concomitant]
     Dosage: UNK
     Dates: start: 20080508
  9. FOLIC ACID [Concomitant]
     Dosage: UNK
     Dates: start: 20080508
  10. MOVICOL                            /01053601/ [Concomitant]
     Dosage: UNK
     Dates: start: 20120302
  11. DEXAMETHASONE [Suspect]
     Indication: MULTIPLE MYELOMA
     Dosage: 20 MG, UNK
     Route: 048
     Dates: start: 20120703, end: 20120714

REACTIONS (4)
  - THROMBOCYTOPENIA [None]
  - VOMITING [None]
  - CARDIO-RESPIRATORY ARREST [None]
  - INTERNATIONAL NORMALISED RATIO INCREASED [None]
